FAERS Safety Report 9656999 (Version 5)
Quarter: 2014Q2

REPORT INFORMATION
  Report Type: Spontaneous
  Country: US (occurrence: US)
  Receive Date: 20131030
  Receipt Date: 20140530
  Transmission Date: 20141212
  Serious: Yes (Disabling)
  Sender: FDA-Public Use
  Company Number: US-PFIZER INC-2013310393

PATIENT
  Age: 53 Year
  Sex: Female
  Weight: 90.7 kg

DRUGS (10)
  1. LYRICA [Suspect]
     Indication: FIBROMYALGIA
     Dosage: 150 MG, 2X/DAY
     Dates: end: 201310
  2. ADVIL [Suspect]
     Indication: PAIN
     Dosage: 400 MG, AS NEEDED
     Dates: start: 2000
  3. VICODIN [Suspect]
     Indication: PAIN
     Dosage: UNK (AS REQUIRED)
  4. COMBIVENT [Concomitant]
     Indication: ASTHMA
     Dosage: UNK
  5. ADVAIR DISKUS [Concomitant]
     Indication: ASTHMA
     Dosage: UNK
  6. HYDROCODONE BITARTRATE [Concomitant]
     Indication: MUSCLE SPASMS
     Dosage: UNK
  7. CLONAZEPAM [Concomitant]
     Indication: MUSCLE SPASMS
     Dosage: UNK
  8. PROZAC [Concomitant]
     Indication: DEPRESSION
     Dosage: 20 MG, 1X/DAY (1 IN 1 D)
  9. ELAVIL [Concomitant]
     Indication: DEPRESSION
     Dosage: 75 MG, DAILY
  10. SEROQUEL [Concomitant]
     Indication: DEPRESSION
     Dosage: UNK

REACTIONS (8)
  - Pain [Unknown]
  - Neck pain [Unknown]
  - Activities of daily living impaired [Unknown]
  - Drug ineffective [Unknown]
  - Asthenia [Unknown]
  - Mobility decreased [Unknown]
  - Therapeutic response changed [Unknown]
  - Pain [Unknown]
